FAERS Safety Report 11640414 (Version 1)
Quarter: 2015Q4

REPORT INFORMATION
  Report Type: Spontaneous
  Country: US (occurrence: None)
  Receive Date: 20151016
  Receipt Date: 20151016
  Transmission Date: 20160304
  Serious: Yes (Disabling)
  Sender: FDA-Public Use
  Company Number: None

PATIENT
  Age: 53 Year
  Sex: Female
  Weight: 63.5 kg

DRUGS (5)
  1. CIPROFLOXACIN. [Suspect]
     Active Substance: CIPROFLOXACIN
     Indication: URINARY TRACT INFECTION
     Route: 048
     Dates: start: 20150915, end: 20150920
  2. HORMONES [Concomitant]
     Active Substance: UNSPECIFIED INGREDIENT
  3. PRO BIOTICS [Concomitant]
  4. AMBIEN GENERIC [Concomitant]
  5. MAGNESIUM [Concomitant]
     Active Substance: MAGNESIUM

REACTIONS (11)
  - Emotional disorder [None]
  - Headache [None]
  - Aggression [None]
  - Irritability [None]
  - Muscle tightness [None]
  - Confusional state [None]
  - Crying [None]
  - Myalgia [None]
  - Muscle spasms [None]
  - Impaired work ability [None]
  - Activities of daily living impaired [None]

NARRATIVE: CASE EVENT DATE: 20150920
